FAERS Safety Report 18898443 (Version 1)
Quarter: 2021Q1

REPORT INFORMATION
  Report Type: Spontaneous
  Country: US (occurrence: CA)
  Receive Date: 20210216
  Receipt Date: 20210216
  Transmission Date: 20210420
  Serious: Yes (Other)
  Sender: FDA-Public Use
  Company Number: CA-GLAXOSMITHKLINE-CA2021GSK040940

PATIENT
  Sex: Female
  Weight: 70.7 kg

DRUGS (1)
  1. AVANDIA [Suspect]
     Active Substance: ROSIGLITAZONE MALEATE
     Indication: DIABETES MELLITUS
     Dosage: 2 MG, QD
     Route: 048
     Dates: start: 20080215, end: 20201020

REACTIONS (4)
  - Coronary artery disease [Unknown]
  - Chest pain [Unknown]
  - Ventricular fibrillation [Unknown]
  - Cardiac failure [Unknown]
